FAERS Safety Report 25812845 (Version 2)
Quarter: 2025Q4

REPORT INFORMATION
  Report Type: Report from Study
  Country: US (occurrence: US)
  Receive Date: 20250917
  Receipt Date: 20251027
  Transmission Date: 20260118
  Serious: No
  Sender: AMGEN
  Company Number: US-AMGEN-USASP2025184422

PATIENT

DRUGS (1)
  1. UPLIZNA [Suspect]
     Active Substance: INEBILIZUMAB-CDON
     Indication: Neuromyelitis optica spectrum disorder
     Dosage: UNK, ON DAY 1, ON DAY 15 AND THEN EVERY SIX MONTHS SINCE START DATE (ON A ROUTINE SHE^D GET IT EVERY
     Route: 040
     Dates: start: 20230227

REACTIONS (1)
  - Tremor [Unknown]
